FAERS Safety Report 23847820 (Version 1)
Quarter: 2024Q2

REPORT INFORMATION
  Report Type: Spontaneous
  Country: IN (occurrence: IN)
  Receive Date: 20240513
  Receipt Date: 20240513
  Transmission Date: 20240716
  Serious: Yes (Other)
  Sender: FDA-Public Use
  Company Number: IN-PFIZER INC-2020430941

PATIENT
  Age: 60 Year
  Sex: Male
  Weight: 51 kg

DRUGS (2)
  1. CRIZOTINIB [Suspect]
     Active Substance: CRIZOTINIB
     Indication: Lung neoplasm malignant
     Dosage: 250 MG, 2X/DAY
     Route: 048
     Dates: start: 20170322
  2. CRIZOTINIB [Suspect]
     Active Substance: CRIZOTINIB
     Dosage: 250 MG, DAILY

REACTIONS (6)
  - Neoplasm progression [Unknown]
  - Neck pain [Unknown]
  - Pleural thickening [Unknown]
  - Lung consolidation [Unknown]
  - Blood creatinine increased [Unknown]
  - Red blood cell transfusion [Unknown]
